FAERS Safety Report 5165550-1 (Version None)
Quarter: 2006Q4

REPORT INFORMATION
  Report Type: 
  Country: None (occurrence: None)
  Receive Date: 20061206
  Receipt Date: 20061127
  Transmission Date: 20070319
  Serious: Yes (Hospitalization)
  Sender: FDA-Public Use
  Company Number: US-MERCK-0611USA07066

PATIENT
  Age: 50 Year
  Sex: Female

DRUGS (10)
  1. VYTORIN [Suspect]
     Indication: BLOOD CHOLESTEROL
     Route: 048
     Dates: start: 20061023
  2. SINGULAIR [Suspect]
     Indication: ASTHMA
     Route: 065
     Dates: start: 20050101
  3. SINGULAIR [Suspect]
     Indication: HYPERSENSITIVITY
     Route: 065
     Dates: start: 20050101
  4. ULTRAM [Concomitant]
     Route: 065
  5. VALIUM [Concomitant]
     Route: 065
  6. ASPIRIN [Concomitant]
     Route: 065
  7. ATENOLOL [Concomitant]
     Route: 065
  8. PULMICORT [Concomitant]
     Route: 065
  9. CLONIDINE [Concomitant]
     Route: 065
  10. NEFAZODONE HYDROCHLORIDE [Concomitant]
     Route: 065

REACTIONS (3)
  - FEELING ABNORMAL [None]
  - HYPOAESTHESIA ORAL [None]
  - MIGRAINE [None]
